FAERS Safety Report 5596337-3 (Version None)
Quarter: 2008Q1

REPORT INFORMATION
  Report Type: 
  Country: None (occurrence: None)
  Receive Date: 20080118
  Receipt Date: 20080114
  Transmission Date: 20080703
  Serious: Yes (Life-Threatening, Hospitalization, Disabling, Other)
  Sender: FDA-Public Use
  Company Number: GB-MERCK-0801USA03023

PATIENT
  Age: 73 Year
  Sex: Male

DRUGS (9)
  1. PRINIVIL [Suspect]
     Route: 048
     Dates: start: 20070103
  2. ATORVASTATIN CALCIUM [Concomitant]
     Route: 048
     Dates: start: 20070125
  3. CYCLOPHOSPHAMIDE [Suspect]
     Route: 065
     Dates: start: 20071120, end: 20071124
  4. CYCLOPHOSPHAMIDE [Suspect]
     Route: 048
     Dates: start: 20071219, end: 20071223
  5. FLUDARA [Suspect]
     Route: 065
     Dates: start: 20071003, end: 20071007
  6. FLUDARA [Suspect]
     Route: 065
     Dates: start: 20071219, end: 20071223
  7. AMLODIPINE BESYLATE [Concomitant]
     Route: 048
     Dates: start: 20071203
  8. ASPIRIN [Concomitant]
     Route: 048
     Dates: start: 20030507
  9. ATENOLOL [Concomitant]
     Route: 048
     Dates: start: 20070103

REACTIONS (3)
  - EPISTAXIS [None]
  - PETECHIAE [None]
  - THROMBOCYTOPENIA [None]
